FAERS Safety Report 7792233-1 (Version None)
Quarter: 2011Q3

REPORT INFORMATION
  Report Type: 
  Country: None (occurrence: None)
  Receive Date: 20110929
  Receipt Date: 20110915
  Transmission Date: 20111222
  Serious: No
  Sender: FDA-Public Use
  Company Number: TPA2011A05839

PATIENT
  Age: 83 Year
  Sex: Male
  Weight: 97.977 kg

DRUGS (4)
  1. BENICAR HCT (HYDROHLOROTHIAZIDE, OLMESARTAN MEDOXOMIL) [Concomitant]
  2. SIMVASTATIN [Concomitant]
  3. ACTOS [Suspect]
     Indication: TYPE 2 DIABETES MELLITUS
     Dosage: 30 MG, PER ORAL
     Route: 048
     Dates: start: 20010101, end: 20110701
  4. GLYBURIDE [Concomitant]

REACTIONS (1)
  - BLADDER TRANSITIONAL CELL CARCINOMA [None]
